FAERS Safety Report 19611448 (Version 2)
Quarter: 2021Q3

REPORT INFORMATION
  Report Type: Report from Study
  Country: US (occurrence: US)
  Receive Date: 20210726
  Receipt Date: 20210806
  Transmission Date: 20211014
  Serious: Yes (Death, Life-Threatening, Hospitalization, Disabling)
  Sender: FDA-Public Use
  Company Number: US-JNJFOC-20210664343

PATIENT
  Age: 66 Year
  Sex: Male
  Weight: 94.3 kg

DRUGS (1)
  1. AMIVANTAMAB. [Suspect]
     Active Substance: AMIVANTAMAB
     Indication: NON-SMALL CELL LUNG CANCER
     Dosage: MEDICATION KIT NUMBERS: 112756? 112759
     Route: 042
     Dates: start: 20200716

REACTIONS (3)
  - Embolism [Not Recovered/Not Resolved]
  - Respiratory failure [Fatal]
  - Pneumonia [Not Recovered/Not Resolved]

NARRATIVE: CASE EVENT DATE: 20210623
